FAERS Safety Report 7268930-3 (Version None)
Quarter: 2011Q1

REPORT INFORMATION
  Report Type: 
  Country: None (occurrence: None)
  Receive Date: 20110201
  Receipt Date: 20110124
  Transmission Date: 20110831
  Serious: Yes (Hospitalization, Disabling, Other)
  Sender: FDA-Public Use
  Company Number: US-MERCK-0804USA00365

PATIENT
  Age: 52 Year
  Sex: Female
  Weight: 83 kg

DRUGS (2)
  1. FOSAMAX [Suspect]
     Indication: OSTEOPENIA
     Route: 048
     Dates: start: 20020101
  2. FOSAMAX [Suspect]
     Route: 048
     Dates: start: 20030101, end: 20060101

REACTIONS (52)
  - INCREASED TENDENCY TO BRUISE [None]
  - URINARY TRACT INFECTION [None]
  - BRUXISM [None]
  - SIALOADENITIS [None]
  - MAJOR DEPRESSION [None]
  - LIGAMENT DISORDER [None]
  - CHEST DISCOMFORT [None]
  - SUICIDAL IDEATION [None]
  - ANXIETY [None]
  - HAEMATURIA [None]
  - ANIMAL BITE [None]
  - THYROID CYST [None]
  - SLEEP APNOEA SYNDROME [None]
  - ADVERSE DRUG REACTION [None]
  - OSTEONECROSIS OF JAW [None]
  - ARTHRALGIA [None]
  - FOOT DEFORMITY [None]
  - ELECTROCARDIOGRAM ABNORMAL [None]
  - PALPITATIONS [None]
  - INTERVERTEBRAL DISC PROTRUSION [None]
  - LACERATION [None]
  - CONTUSION [None]
  - AORTIC VALVE INCOMPETENCE [None]
  - CIRCADIAN RHYTHM SLEEP DISORDER [None]
  - PANIC ATTACK [None]
  - COSTOCHONDRITIS [None]
  - MYALGIA [None]
  - MUSCLE STRAIN [None]
  - OSTEOMYELITIS [None]
  - ROAD TRAFFIC ACCIDENT [None]
  - BONE DENSITY DECREASED [None]
  - FATIGUE [None]
  - PNEUMONIA [None]
  - TEMPOROMANDIBULAR JOINT SYNDROME [None]
  - SYNCOPE [None]
  - STREPTOCOCCAL INFECTION [None]
  - ADVERSE EVENT [None]
  - ACUTE SINUSITIS [None]
  - ROTATOR CUFF SYNDROME [None]
  - VIRAL INFECTION [None]
  - SACROILIITIS [None]
  - CHEST PAIN [None]
  - INFLUENZA [None]
  - PAIN IN JAW [None]
  - ORAL INFECTION [None]
  - TOOTH FRACTURE [None]
  - OROPHARYNGEAL PAIN [None]
  - DIZZINESS [None]
  - DIPLOPIA [None]
  - GOITRE [None]
  - MYOSITIS [None]
  - ARTHRITIS [None]
